FAERS Safety Report 13359791 (Version 2)
Quarter: 2017Q2

REPORT INFORMATION
  Report Type: Spontaneous
  Country: US (occurrence: US)
  Receive Date: 20170322
  Receipt Date: 20170606
  Transmission Date: 20170830
  Serious: No
  Sender: FDA-Public Use
  Company Number: US-LEO PHARMA-300345

PATIENT
  Age: 84 Year
  Sex: Male

DRUGS (1)
  1. PICATO [Suspect]
     Active Substance: INGENOL MEBUTATE
     Indication: ACTINIC KERATOSIS
     Route: 061
     Dates: start: 20170316, end: 20170317

REACTIONS (4)
  - Inappropriate schedule of drug administration [Unknown]
  - Application site burn [Recovered/Resolved]
  - Application site discomfort [Recovered/Resolved]
  - Incorrect dose administered [Unknown]
